FAERS Safety Report 18257639 (Version 2)
Quarter: 2020Q4

REPORT INFORMATION
  Report Type: Spontaneous
  Country: CA (occurrence: CA)
  Receive Date: 20200911
  Receipt Date: 20201125
  Transmission Date: 20210113
  Serious: Yes (Death, Hospitalization)
  Sender: FDA-Public Use
  Company Number: CA-PFIZER INC-2020351295

PATIENT
  Age: 45 Year
  Sex: Female
  Weight: 76 kg

DRUGS (2)
  1. LETROZOLE. [Concomitant]
     Active Substance: LETROZOLE
     Indication: BREAST CANCER METASTATIC
     Dosage: UNK
     Dates: start: 20200611, end: 20200804
  2. IBRANCE [Suspect]
     Active Substance: PALBOCICLIB
     Indication: BREAST CANCER METASTATIC
     Dosage: 125 MG, CYCLIC: DAILY DAY 1 TO 21 (D1-21) EVERY 28 DAYS (Q28D)
     Route: 048
     Dates: start: 20200611, end: 20200804

REACTIONS (4)
  - Pneumonia [Fatal]
  - Dyspnoea [Unknown]
  - Sepsis [Fatal]
  - White blood cell count increased [Unknown]
